FAERS Safety Report 4642961-1 (Version None)
Quarter: 2005Q2

REPORT INFORMATION
  Report Type: 
  Country: None (occurrence: None)
  Receive Date: 20050421
  Receipt Date: 20050408
  Transmission Date: 20051028
  Serious: Yes (Other)
  Sender: FDA-Public Use
  Company Number: 2005057339

PATIENT
  Sex: Female

DRUGS (1)
  1. BEXTRA [Suspect]
     Indication: MUSCULOSKELETAL PAIN
     Dosage: (1 IN 1 D), ORAL
     Route: 048
     Dates: start: 20050201, end: 20050404

REACTIONS (3)
  - ALOPECIA [None]
  - PRURITUS [None]
  - RASH [None]
